FAERS Safety Report 5141752-5 (Version None)
Quarter: 2006Q4

REPORT INFORMATION
  Report Type: 
  Country: None (occurrence: None)
  Receive Date: 20061101
  Receipt Date: 20061023
  Transmission Date: 20070319
  Serious: Yes (Life-Threatening, Hospitalization)
  Sender: FDA-Public Use
  Company Number: DE-ABBOTT-06P-062-0347867-00

PATIENT
  Sex: Female

DRUGS (2)
  1. HUMIRA [Suspect]
     Indication: RHEUMATOID ARTHRITIS
     Route: 058
     Dates: start: 20031001, end: 20061001
  2. PREDNISOLONE [Concomitant]
     Indication: RHEUMATOID ARTHRITIS

REACTIONS (5)
  - ANAEMIA [None]
  - DIARRHOEA [None]
  - ENDOCARDITIS [None]
  - HEART VALVE INSUFFICIENCY [None]
  - PNEUMONIA [None]
